FAERS Safety Report 5269379-5 (Version None)
Quarter: 2007Q1

REPORT INFORMATION
  Report Type: 
  Country: None (occurrence: None)
  Receive Date: 20070319
  Receipt Date: 20070309
  Transmission Date: 20070707
  Serious: Yes (Other)
  Sender: FDA-Public Use
  Company Number: JP-PFIZER INC-2007019223

PATIENT
  Age: 38 Year
  Sex: Male

DRUGS (2)
  1. SOLU-MEDROL [Suspect]
     Indication: SPINAL CORD INJURY
     Dosage: TEXT:30MG/KG
     Route: 042
  2. ALL OTHER THERAPEUTIC PRODUCTS [Concomitant]

REACTIONS (3)
  - ASTHMA [None]
  - BLOOD PRESSURE DECREASED [None]
  - ERYTHEMA [None]
